FAERS Safety Report 23859194 (Version 2)
Quarter: 2024Q2

REPORT INFORMATION
  Report Type: Report from Study
  Country: BY (occurrence: BY)
  Receive Date: 20240515
  Receipt Date: 20240520
  Transmission Date: 20240716
  Serious: Yes (Other)
  Sender: FDA-Public Use
  Company Number: BY-MYLANLABS-2024M1043225

PATIENT
  Age: 40 Year
  Sex: Female
  Weight: 59 kg

DRUGS (9)
  1. PRETOMANID [Suspect]
     Active Substance: PRETOMANID
     Indication: Product used for unknown indication
     Dosage: 200 MILLIGRAM, QD
     Route: 048
     Dates: start: 20240415
  2. BEDAQUILINE [Suspect]
     Active Substance: BEDAQUILINE
     Indication: Product used for unknown indication
     Dosage: 200 MILLIGRAM, 3XW
     Route: 048
     Dates: start: 20240415
  3. LINEZOLID [Suspect]
     Active Substance: LINEZOLID
     Indication: Product used for unknown indication
     Dosage: 300 MILLIGRAM, QD
     Route: 048
     Dates: start: 20240415
  4. MOXIFLOXACIN [Suspect]
     Active Substance: MOXIFLOXACIN
     Indication: Product used for unknown indication
     Dosage: 400 MILLIGRAM, QD
     Route: 048
     Dates: start: 20240415, end: 20240503
  5. LAMIVUDINE [Concomitant]
     Active Substance: LAMIVUDINE
     Indication: HIV infection
     Dosage: UNK, QD (600/300 MG DAILY)
     Route: 065
     Dates: start: 20240411
  6. DOLUTEGRAVIR [Concomitant]
     Active Substance: DOLUTEGRAVIR
     Indication: HIV infection
     Dosage: 50 MILLIGRAM, QD
     Route: 065
     Dates: start: 20240411
  7. PYRIDOXINE [Concomitant]
     Active Substance: PYRIDOXINE
     Indication: Prophylaxis
     Dosage: 100 MILLIGRAM, QD
     Route: 065
     Dates: start: 20240415
  8. COTRIMOXAZOLE [Concomitant]
     Active Substance: SULFAMETHOXAZOLE\TRIMETHOPRIM
     Indication: Prophylaxis
     Dosage: 2 DOSAGE FORM, QD (480 MG TWO TABLETS DAILY)
     Route: 065
     Dates: start: 20240411
  9. Sonex [Concomitant]
     Indication: Insomnia
     Dosage: 7.5 MILLIGRAM, PM (AT NIGHT)
     Route: 065
     Dates: start: 20240417

REACTIONS (3)
  - Psychotic disorder [Recovered/Resolved]
  - Psychomotor hyperactivity [Recovered/Resolved]
  - Headache [Recovered/Resolved]

NARRATIVE: CASE EVENT DATE: 20240421
